FAERS Safety Report 18020785 (Version 1)
Quarter: 2020Q3

REPORT INFORMATION
  Report Type: Report from Study
  Country: US (occurrence: US)
  Receive Date: 20200714
  Receipt Date: 20200714
  Transmission Date: 20201103
  Serious: Yes (Other)
  Sender: FDA-Public Use
  Company Number: US-PFIZER INC-2020265830

PATIENT
  Age: 67 Year
  Sex: Male

DRUGS (18)
  1. VENCLEXTA [Interacting]
     Active Substance: VENETOCLAX
     Dosage: 50 MG, DAILY FOR 7 DAYS
     Route: 048
     Dates: start: 2020, end: 2020
  2. ALLOPURINOL. [Concomitant]
     Active Substance: ALLOPURINOL
     Dosage: UNK
  3. CYCLOBENZAPRINE HYDROCHLORIDE. [Concomitant]
     Active Substance: CYCLOBENZAPRINE HYDROCHLORIDE
     Dosage: UNK
  4. TURMERIC CURCUMIN [Concomitant]
     Active Substance: HERBALS\TURMERIC
     Dosage: UNK
  5. LIPITOR [Suspect]
     Active Substance: ATORVASTATIN CALCIUM
     Dosage: UNK
  6. VENCLEXTA [Interacting]
     Active Substance: VENETOCLAX
     Dosage: 100 MG, DAILY FOR 7 DAYS
     Route: 048
     Dates: start: 2020, end: 2020
  7. LOMOTIL [Concomitant]
     Active Substance: ATROPINE SULFATE\DIPHENOXYLATE HYDROCHLORIDE
     Dosage: UNK
  8. VENCLEXTA [Interacting]
     Active Substance: VENETOCLAX
     Dosage: 20 MG, DAILY
     Route: 048
     Dates: start: 20200612
  9. CO ENZYME Q10 [UBIDECARENONE] [Concomitant]
     Dosage: UNK
  10. IBUPROFEN. [Concomitant]
     Active Substance: IBUPROFEN
     Dosage: UNK
  11. MARINOL [ALLOPURINOL] [Concomitant]
     Active Substance: ALLOPURINOL
     Dosage: UNK
  12. ZOFRAN [Concomitant]
     Active Substance: ONDANSETRON HYDROCHLORIDE
     Dosage: UNK
  13. VENCLEXTA [Interacting]
     Active Substance: VENETOCLAX
     Indication: CHRONIC LYMPHOCYTIC LEUKAEMIA
     Dosage: 200 MG, DAILY, 100 MG TAB, 2 PER DAY FOR 7 DAYS
     Route: 048
     Dates: start: 2020, end: 2020
  14. VITAMIN B12 [Concomitant]
     Active Substance: CYANOCOBALAMIN
     Dosage: UNK
  15. VITAMIN C [Concomitant]
     Active Substance: ASCORBIC ACID
     Dosage: UNK
  16. VITAMIN D3 [Concomitant]
     Active Substance: CHOLECALCIFEROL
     Dosage: UNK
  17. VENCLEXTA [Interacting]
     Active Substance: VENETOCLAX
     Dosage: 20 MG, DAILY, 10 MG TAB 2 PER DAY FOR 7 DAYS
     Route: 048
     Dates: start: 2020, end: 2020
  18. CALCIUM 600 PLUS VITAMIN D3 [Concomitant]
     Dosage: UNK

REACTIONS (6)
  - Fatigue [Unknown]
  - Asthenia [Unknown]
  - Drug interaction [Unknown]
  - Haemoglobin decreased [Unknown]
  - Platelet count decreased [Unknown]
  - Increased tendency to bruise [Unknown]

NARRATIVE: CASE EVENT DATE: 2020
